FAERS Safety Report 21862068 (Version 1)
Quarter: 2023Q1

REPORT INFORMATION
  Report Type: Report from Study
  Country: US (occurrence: US)
  Receive Date: 20230113
  Receipt Date: 20230113
  Transmission Date: 20230418
  Serious: No
  Sender: FDA-Public Use
  Company Number: US-ABBVIE-22K-163-4528098-00

PATIENT
  Sex: Female
  Weight: 97.522 kg

DRUGS (3)
  1. HUMIRA [Suspect]
     Active Substance: ADALIMUMAB
     Indication: Psoriasis
     Route: 058
     Dates: start: 20220425, end: 20220801
  2. MODERNA COVID-19 VACCINE [Concomitant]
     Active Substance: ELASOMERAN
     Indication: COVID-19 immunisation
     Dosage: 1ST DOSE
     Route: 030
     Dates: start: 20210802, end: 20210802
  3. MODERNA COVID-19 VACCINE [Concomitant]
     Active Substance: ELASOMERAN
     Indication: COVID-19 immunisation
     Dosage: 2ND DOSE
     Route: 030
     Dates: start: 20210905, end: 20210905

REACTIONS (13)
  - Chills [Recovered/Resolved]
  - Genital odour [Unknown]
  - Peripheral swelling [Unknown]
  - Pustule [Unknown]
  - Skin burning sensation [Unknown]
  - Skin swelling [Unknown]
  - Onychomadesis [Unknown]
  - Rash [Unknown]
  - Rash pruritic [Unknown]
  - Rash erythematous [Unknown]
  - Gait inability [Unknown]
  - Alopecia [Unknown]
  - Pruritus genital [Unknown]
